FAERS Safety Report 20572063 (Version 1)
Quarter: 2022Q1

REPORT INFORMATION
  Report Type: Spontaneous
  Country: US (occurrence: None)
  Receive Date: 20220308
  Receipt Date: 20220308
  Transmission Date: 20220423
  Serious: Yes (Other)
  Sender: FDA-Public Use
  Company Number: None

PATIENT
  Age: 55 Year
  Sex: Female
  Weight: 68 kg

DRUGS (21)
  1. PEMBROLIZUMAB [Suspect]
     Active Substance: PEMBROLIZUMAB
     Dates: start: 20220222
  2. CARBOPLATIN [Suspect]
     Active Substance: CARBOPLATIN
  3. GEMCITABINE [Suspect]
     Active Substance: GEMCITABINE
  4. MIRTAZAPINE [Concomitant]
     Active Substance: MIRTAZAPINE
  5. Psyllium Seed Sucrose Powder [Concomitant]
  6. Lactobac No  42/Bifidobact no 7 [Concomitant]
  7. COLACE [Concomitant]
     Active Substance: DOCUSATE SODIUM
  8. MIRALAX [Concomitant]
     Active Substance: POLYETHYLENE GLYCOL 3350
  9. Cholecalciferol Vitamin D [Concomitant]
  10. IBUPROFEN [Concomitant]
     Active Substance: IBUPROFEN
  11. COMPAZINE [Concomitant]
     Active Substance: PROCHLORPERAZINE MALEATE
  12. SUDAFED [Concomitant]
     Active Substance: PSEUDOEPHEDRINE HYDROCHLORIDE
  13. FAMOTIDINE [Concomitant]
     Active Substance: FAMOTIDINE
  14. FLUOXETINE [Concomitant]
     Active Substance: FLUOXETINE HYDROCHLORIDE
  15. PREVIDENT [Concomitant]
     Active Substance: SODIUM FLUORIDE
  16. GABAPENTIN [Concomitant]
     Active Substance: GABAPENTIN
  17. Xiidra Dropperette 5% [Concomitant]
  18. Multivit with minerals/lutein [Concomitant]
  19. Krill-om-3-dha-epa-phospho-ast (krill oil) [Concomitant]
  20. FLAXSEED [Concomitant]
     Active Substance: FLAX SEED
  21. RITALIN [Concomitant]
     Active Substance: METHYLPHENIDATE HYDROCHLORIDE

REACTIONS (5)
  - Malaise [None]
  - Dizziness [None]
  - Pain in extremity [None]
  - Fall [None]
  - Bursitis [None]

NARRATIVE: CASE EVENT DATE: 20220307
